FAERS Safety Report 10220316 (Version 2)
Quarter: 2014Q2

REPORT INFORMATION
  Report Type: Spontaneous
  Country: GB (occurrence: GB)
  Receive Date: 20140606
  Receipt Date: 20140627
  Transmission Date: 20141212
  Serious: Yes (Other)
  Sender: FDA-Public Use
  Company Number: GB-ACCORD-024045

PATIENT
  Sex: 0

DRUGS (2)
  1. MYCOPHENOLIC ACID [Suspect]
     Indication: PRODUCT USED FOR UNKNOWN INDICATION
     Dosage: FROM 02-APR-2014, PATIENT STARTED 250 MG DOSE ONCE A DAY.
  2. ADOPORT [Suspect]
     Indication: PRODUCT USED FOR UNKNOWN INDICATION
     Dosage: 11TH DEC AND 6TH JUN:ADOPORT 1.5 MG IN THE MORNING AND 1 MG AT NIGHT.

REACTIONS (3)
  - Insomnia [Unknown]
  - Anxiety [Unknown]
  - Palpitations [Unknown]
